FAERS Safety Report 8001415-5 (Version None)
Quarter: 2011Q4

REPORT INFORMATION
  Report Type: 
  Country: None (occurrence: None)
  Receive Date: 20111222
  Receipt Date: 20111216
  Transmission Date: 20120403
  Serious: Yes (Hospitalization)
  Sender: FDA-Public Use
  Company Number: US-US-EMD SERONO, INC.-7102271

PATIENT
  Sex: Female

DRUGS (1)
  1. REBIF [Suspect]
     Indication: MULTIPLE SCLEROSIS
     Route: 058
     Dates: start: 20040606

REACTIONS (6)
  - RENAL FAILURE [None]
  - DECREASED APPETITE [None]
  - WEIGHT DECREASED [None]
  - DEHYDRATION [None]
  - ANAEMIA [None]
  - FATIGUE [None]
